FAERS Safety Report 21312886 (Version 1)
Quarter: 2022Q3

REPORT INFORMATION
  Report Type: Other
  Country: GB (occurrence: GB)
  Receive Date: 20220909
  Receipt Date: 20220909
  Transmission Date: 20221027
  Serious: Yes (Other)
  Sender: FDA-Public Use
  Company Number: None

PATIENT

DRUGS (8)
  1. ROSUVASTATIN CALCIUM [Suspect]
     Active Substance: ROSUVASTATIN CALCIUM
     Indication: Ill-defined disorder
     Dosage: UNK
     Route: 065
     Dates: start: 20220825
  2. ATORVASTATIN [Concomitant]
     Active Substance: ATORVASTATIN
     Indication: Ill-defined disorder
     Dosage: UNK, OD; TAKE ONE DAILY IN THE EVENING TO LOWER CHOLESTEROL
     Route: 065
     Dates: start: 20220825
  3. ATORVASTATIN [Concomitant]
     Active Substance: ATORVASTATIN
     Indication: Blood cholesterol abnormal
  4. FELODIPINE [Concomitant]
     Active Substance: FELODIPINE
     Indication: Ill-defined disorder
     Dosage: UNK UNK, OD
     Route: 065
     Dates: start: 20220523
  5. BUTYLSCOPOLAMINE BROMIDE [Concomitant]
     Active Substance: BUTYLSCOPOLAMINE BROMIDE
     Indication: Ill-defined disorder
     Dosage: 2 DOSAGE FORM, QID (TAKE TWO TABLETS 4 TIMES/DAY)
     Route: 065
     Dates: start: 20220523
  6. LOPERAMIDE [Concomitant]
     Active Substance: LOPERAMIDE
     Indication: Ill-defined disorder
     Dosage: UNK, PRN; TAKE ONE - TWO TABLETS AS NEEDED
     Route: 065
     Dates: start: 20210512
  7. ROSUVASTATIN [Concomitant]
     Active Substance: ROSUVASTATIN
     Indication: Ill-defined disorder
     Dosage: UNK UNK, QD; TAKE ONE DAILY
     Route: 065
     Dates: start: 20210512, end: 20220825
  8. ACETAMINOPHEN\CODEINE PHOSPHATE [Concomitant]
     Active Substance: ACETAMINOPHEN\CODEINE PHOSPHATE
     Indication: Ill-defined disorder
     Dosage: UNK; TAKE 1 OR 2 UP TO 4 TIMES/DAY
     Route: 065
     Dates: start: 20220523

REACTIONS (4)
  - Fatigue [Recovered/Resolved]
  - Muscle spasms [Recovered/Resolved]
  - Adverse drug reaction [Recovered/Resolved]
  - Myalgia [Recovered/Resolved]

NARRATIVE: CASE EVENT DATE: 20220825
